FAERS Safety Report 6450506-9 (Version None)
Quarter: 2009Q4

REPORT INFORMATION
  Report Type: 
  Country: None (occurrence: None)
  Receive Date: 20091123
  Receipt Date: 20091111
  Transmission Date: 20100525
  Serious: Yes (Hospitalization, Other)
  Sender: FDA-Public Use
  Company Number: PHEH2009US15314

PATIENT
  Sex: Male

DRUGS (1)
  1. EXJADE [Suspect]
     Dosage: 2000 MG, QD
     Route: 048

REACTIONS (5)
  - CHOLECYSTITIS [None]
  - HAEMOLYSIS [None]
  - LEUKOCYTOSIS [None]
  - SICKLE CELL ANAEMIA WITH CRISIS [None]
  - THROMBOCYTOPENIA [None]
